FAERS Safety Report 16360522 (Version 1)
Quarter: 2019Q2

REPORT INFORMATION
  Report Type: Spontaneous
  Country: GB (occurrence: GB)
  Receive Date: 20190528
  Receipt Date: 20190528
  Transmission Date: 20190711
  Serious: Yes (Other)
  Sender: FDA-Public Use
  Company Number: GB-AUROBINDO-AUR-APL-2019-029400

PATIENT

DRUGS (3)
  1. QUETIAPINE. [Suspect]
     Active Substance: QUETIAPINE
     Indication: BIPOLAR DISORDER
     Dosage: STARTED ON 75 MG TITRATED UP TO 300 MG AT TIME OF STOPPING.
     Route: 048
     Dates: start: 20141101
  2. QUETIAPINE. [Suspect]
     Active Substance: QUETIAPINE
     Dosage: STARTED ON 75 MG TITRATED UP TO 300 MG AT TIME OF STOPPING300 MILLIGRAM
     Route: 048
     Dates: end: 20181201
  3. AMITRIPTYLINE [Concomitant]
     Active Substance: AMITRIPTYLINE
     Indication: PRODUCT USED FOR UNKNOWN INDICATION
     Dosage: 50 MILLIGRAM
     Route: 065

REACTIONS (1)
  - Spasmodic dysphonia [Recovered/Resolved with Sequelae]

NARRATIVE: CASE EVENT DATE: 20150601
